FAERS Safety Report 21712423 (Version 3)
Quarter: 2022Q4

REPORT INFORMATION
  Report Type: Spontaneous
  Country: DE (occurrence: None)
  Receive Date: 20221212
  Receipt Date: 20221222
  Transmission Date: 20230113
  Serious: Yes (Death, Life-Threatening, Other)
  Sender: FDA-Public Use
  Company Number: 2022A402603

PATIENT
  Age: 21723 Day
  Sex: Female
  Weight: 106 kg

DRUGS (1)
  1. TEZSPIRE [Suspect]
     Active Substance: TEZEPELUMAB-EKKO
     Route: 058
     Dates: start: 20221125

REACTIONS (3)
  - Pancreatitis acute [Fatal]
  - Acute respiratory distress syndrome [Fatal]
  - Shock [Unknown]

NARRATIVE: CASE EVENT DATE: 20221129
